FAERS Safety Report 7356216-8 (Version None)
Quarter: 2011Q1

REPORT INFORMATION
  Report Type: 
  Country: None (occurrence: None)
  Receive Date: 20110316
  Receipt Date: 20100921
  Transmission Date: 20110831
  Serious: Yes (Other)
  Sender: FDA-Public Use
  Company Number: US-BAYER-201016846NA

PATIENT
  Sex: Female
  Weight: 77.098 kg

DRUGS (5)
  1. YASMIN [Suspect]
     Indication: PRODUCT USED FOR UNKNOWN INDICATION
     Route: 048
  2. PROZAC [Concomitant]
     Dosage: 20 MG, UNK
     Route: 048
  3. ANTIBIOTICS [Concomitant]
     Dosage: UNK
     Dates: start: 20080701
  4. DIFLUCAN [Concomitant]
     Dosage: 200 MG, UNK
     Route: 048
  5. YAZ [Suspect]
     Indication: ORAL CONTRACEPTION
     Dosage: 1 DF, QD
     Route: 048
     Dates: start: 20070924, end: 20090616

REACTIONS (3)
  - CHOLELITHIASIS [None]
  - GALLBLADDER DISORDER [None]
  - CHOLECYSTITIS [None]
